FAERS Safety Report 4417743-6 (Version None)
Quarter: 2004Q3

REPORT INFORMATION
  Report Type: 
  Country: None (occurrence: None)
  Receive Date: 20040803
  Receipt Date: 20040720
  Transmission Date: 20050211
  Serious: Yes (Death)
  Sender: FDA-Public Use
  Company Number: JP-JNJFOC-20030900355

PATIENT
  Age: 81 Year
  Sex: Male

DRUGS (4)
  1. FENTANYL [Suspect]
     Indication: CANCER PAIN
     Dosage: 2.5 MG, 1 IN 3 DAY, TRANSDERMAL
     Route: 062
     Dates: start: 20030807, end: 20030809
  2. MIDAZOLAM [Concomitant]
  3. PICIBANIL (STREPTOCOCCUS PYOGENES) [Concomitant]
  4. HALOPERIDOL [Concomitant]
     Indication: SEDATION

REACTIONS (4)
  - DEPRESSED LEVEL OF CONSCIOUSNESS [None]
  - LUNG NEOPLASM MALIGNANT [None]
  - MALIGNANT NEOPLASM PROGRESSION [None]
  - VENTRICULAR EXTRASYSTOLES [None]
